FAERS Safety Report 4590301-9 (Version None)
Quarter: 2005Q1

REPORT INFORMATION
  Report Type: 
  Country: None (occurrence: None)
  Receive Date: 20050217
  Receipt Date: 20050204
  Transmission Date: 20050727
  Serious: Yes (Hospitalization)
  Sender: FDA-Public Use
  Company Number: 2005CG00274

PATIENT
  Age: 83 Year
  Sex: Female

DRUGS (7)
  1. OMEPRAZOLE [Suspect]
     Indication: DYSPEPSIA
     Dosage: 20 MG DAILY PO
     Route: 048
  2. ZANIDIP [Suspect]
     Indication: ESSENTIAL HYPERTENSION
     Dosage: 10 MG DAILY PO
     Route: 048
     Dates: end: 20041216
  3. SINGULAIR [Suspect]
     Indication: ASTHMA
     Dosage: 10 MG DAILY PO
     Route: 048
  4. PLAVIX [Suspect]
     Indication: ARTHRITIS
     Dosage: 75 MG DAILY PO
     Route: 048
  5. FLECAINE [Suspect]
     Indication: ARRHYTHMIA
     Dosage: 100 MG DAILY PO
     Route: 048
  6. NPH INSULIN [Suspect]
     Indication: DIABETES MELLITUS INSULIN-DEPENDENT
     Dosage: 14 IU DAILY SQ
     Route: 058
     Dates: end: 20041201
  7. NPH INSULIN [Suspect]
     Indication: DIABETES MELLITUS INSULIN-DEPENDENT
     Dosage: 12 IU DAILY SQ
     Route: 058
     Dates: start: 20041201

REACTIONS (13)
  - ATRIOVENTRICULAR BLOCK [None]
  - CARDIAC MURMUR [None]
  - DEHYDRATION [None]
  - FALL [None]
  - HEAD INJURY [None]
  - HYPERHIDROSIS [None]
  - HYPOGLYCAEMIA [None]
  - LEUKOARAIOSIS [None]
  - LOSS OF CONSCIOUSNESS [None]
  - MALAISE [None]
  - ORTHOSTATIC HYPOTENSION [None]
  - VENTRICULAR EXTRASYSTOLES [None]
  - WOUND [None]
